FAERS Safety Report 15119660 (Version 1)
Quarter: 2018Q3

REPORT INFORMATION
  Report Type: Spontaneous
  Country: US (occurrence: US)
  Receive Date: 20180613
  Receipt Date: 20180613
  Transmission Date: 20181010
  Serious: Yes (Other)
  Sender: FDA-Public Use
  Company Number: None

PATIENT
  Age: 32 Year
  Sex: Female

DRUGS (5)
  1. VANCOMYCIN [Concomitant]
     Active Substance: VANCOMYCIN
  2. PROBIOTICS [Concomitant]
     Active Substance: PROBIOTICS NOS
  3. ROCEPHIN [Suspect]
     Active Substance: CEFTRIAXONE SODIUM
     Indication: SEPSIS
     Dates: start: 20180504, end: 20180509
  4. ROCEPHIN [Suspect]
     Active Substance: CEFTRIAXONE SODIUM
     Indication: KIDNEY INFECTION
     Dates: start: 20180504, end: 20180509
  5. AUGMENTIN [Suspect]
     Active Substance: AMOXICILLIN\CLAVULANATE POTASSIUM
     Indication: SEPSIS
     Dates: start: 20180506, end: 20180512

REACTIONS (3)
  - Clostridium difficile infection [None]
  - Drug intolerance [None]
  - Sepsis [None]

NARRATIVE: CASE EVENT DATE: 20180515
